FAERS Safety Report 22290033 (Version 1)
Quarter: 2023Q2

REPORT INFORMATION
  Report Type: Spontaneous
  Country: DK (occurrence: DK)
  Receive Date: 20230505
  Receipt Date: 20230505
  Transmission Date: 20230721
  Serious: Yes (Other)
  Sender: FDA-Public Use
  Company Number: DK-TEVA-2023-DK-2879740

PATIENT
  Age: 76 Year
  Sex: Male

DRUGS (4)
  1. OXYCODONE HYDROCHLORIDE [Suspect]
     Active Substance: OXYCODONE HYDROCHLORIDE
     Indication: Product used for unknown indication
     Route: 065
     Dates: end: 20190518
  2. OXYCODONE HYDROCHLORIDE [Suspect]
     Active Substance: OXYCODONE HYDROCHLORIDE
     Indication: Product used for unknown indication
     Route: 065
  3. MORPHINE [Suspect]
     Active Substance: MORPHINE
     Indication: Product used for unknown indication
     Route: 065
     Dates: end: 202205
  4. OXYCODONE [Suspect]
     Active Substance: OXYCODONE
     Indication: Product used for unknown indication
     Route: 065
     Dates: start: 201902

REACTIONS (5)
  - Drug dependence [Recovered/Resolved]
  - Nephrolithiasis [Unknown]
  - Thrombosis [Unknown]
  - Neuralgia [Not Recovered/Not Resolved]
  - Sensory loss [Unknown]

NARRATIVE: CASE EVENT DATE: 20190101
